FAERS Safety Report 12337881 (Version 3)
Quarter: 2016Q2

REPORT INFORMATION
  Report Type: Spontaneous
  Country: US (occurrence: US)
  Receive Date: 20160505
  Receipt Date: 20160520
  Transmission Date: 20160815
  Serious: Yes (Other)
  Sender: FDA-Public Use
  Company Number: US-BAXALTA-2016BLT003107

PATIENT
  Age: 4 Year
  Sex: Female
  Weight: 15 kg

DRUGS (1)
  1. ONCASPAR [Suspect]
     Active Substance: PEGASPARGASE
     Indication: ACUTE LYMPHOCYTIC LEUKAEMIA
     Dosage: 1625 IU
     Route: 042
     Dates: start: 20160421, end: 20160421

REACTIONS (5)
  - Crying [Recovered/Resolved]
  - Erythema [Recovered/Resolved]
  - Cough [Recovered/Resolved]
  - Tremor [Unknown]
  - Wheezing [Recovered/Resolved]

NARRATIVE: CASE EVENT DATE: 20160421
